FAERS Safety Report 7281519-5 (Version None)
Quarter: 2011Q1

REPORT INFORMATION
  Report Type: 
  Country: None (occurrence: None)
  Receive Date: 20110208
  Receipt Date: 20110202
  Transmission Date: 20110831
  Serious: Yes (Hospitalization, Other)
  Sender: FDA-Public Use
  Company Number: US-PFIZER INC-2011024481

PATIENT
  Sex: Female
  Weight: 51 kg

DRUGS (4)
  1. DEPO-PROVERA [Suspect]
     Indication: CONTRACEPTION
     Dosage: UNK
     Dates: start: 20100101
  2. CITALOPRAM [Concomitant]
     Dosage: UNK
  3. ALBUTEROL [Concomitant]
     Dosage: UNK
  4. ADVIL [Concomitant]
     Dosage: UNK, AS NEEDED

REACTIONS (4)
  - PARALYSIS [None]
  - HYPOAESTHESIA [None]
  - BLOOD CREATINE PHOSPHOKINASE INCREASED [None]
  - PARAESTHESIA [None]
